FAERS Safety Report 7901274-2 (Version None)
Quarter: 2011Q4

REPORT INFORMATION
  Report Type: 
  Country: None (occurrence: None)
  Receive Date: 20111108
  Receipt Date: 20111102
  Transmission Date: 20120403
  Serious: Yes (Other)
  Sender: FDA-Public Use
  Company Number: PHHY2011AU097495

PATIENT
  Sex: Female

DRUGS (2)
  1. ZOLEDRONOC ACID [Suspect]
     Dosage: 5 MG, UNK
     Dates: start: 20090817
  2. ZOLEDRONOC ACID [Suspect]
     Dosage: 5 MG, UNK
     Dates: start: 20101117

REACTIONS (2)
  - RECURRENT CANCER [None]
  - RENAL IMPAIRMENT [None]
